FAERS Safety Report 12519345 (Version 7)
Quarter: 2016Q3

REPORT INFORMATION
  Report Type: Spontaneous
  Country: DE (occurrence: DE)
  Receive Date: 20160701
  Receipt Date: 20160916
  Transmission Date: 20161109
  Serious: Yes (Hospitalization, Other)
  Sender: FDA-Public Use
  Company Number: DE-ROCHE-1772261

PATIENT
  Sex: Male

DRUGS (6)
  1. MABTHERA [Suspect]
     Active Substance: RITUXIMAB
     Indication: NON-HODGKIN^S LYMPHOMA
     Dosage: CYCLE 1-6 TOGETHER WITH BENDAMUSTINE IN MO28457
     Route: 042
     Dates: start: 20140411
  2. MABTHERA [Suspect]
     Active Substance: RITUXIMAB
     Indication: NON-HODGKIN^S LYMPHOMA
     Route: 058
     Dates: start: 20140731
  3. MABTHERA [Suspect]
     Active Substance: RITUXIMAB
     Dosage: AS MAINTENANCE THERAPY
     Route: 042
     Dates: start: 2015
  4. BENDAMUSTINE [Concomitant]
     Active Substance: BENDAMUSTINE
     Indication: NON-HODGKIN^S LYMPHOMA
     Dosage: 6 ADMINISTRATIONS
     Route: 065
     Dates: start: 20140411, end: 20140828
  5. MABTHERA [Suspect]
     Active Substance: RITUXIMAB
     Dosage: CYCLE 7 AND 8 IN MO28457
     Route: 058
     Dates: start: 2015
  6. MABTHERA [Suspect]
     Active Substance: RITUXIMAB
     Route: 058
     Dates: start: 20160623

REACTIONS (5)
  - CD4 lymphocytes decreased [Not Recovered/Not Resolved]
  - Gastroenteritis norovirus [Unknown]
  - Mental impairment [Not Recovered/Not Resolved]
  - Obstruction [Unknown]
  - Retching [Unknown]

NARRATIVE: CASE EVENT DATE: 201409
